FAERS Safety Report 24962715 (Version 1)
Quarter: 2025Q1

REPORT INFORMATION
  Report Type: Spontaneous
  Country: GB (occurrence: GB)
  Receive Date: 20250212
  Receipt Date: 20250212
  Transmission Date: 20250408
  Serious: Yes (Other)
  Sender: VIIV
  Company Number: None

PATIENT

DRUGS (10)
  1. CABOTEGRAVIR [Suspect]
     Active Substance: CABOTEGRAVIR
     Indication: HIV infection
     Dosage: 30 MG, QD
     Route: 065
     Dates: start: 20250122, end: 20250205
  2. RILPIVIRINE [Concomitant]
     Active Substance: RILPIVIRINE
     Indication: HIV infection
     Route: 065
     Dates: start: 20250122, end: 20250205
  3. VENLAFAXINE [Concomitant]
     Active Substance: VENLAFAXINE HYDROCHLORIDE
     Indication: Bipolar disorder
     Route: 065
  4. AMITRIPTYLINE [Concomitant]
     Active Substance: AMITRIPTYLINE
     Indication: Product used for unknown indication
     Route: 065
  5. MORPHINE SULFATE [Concomitant]
     Active Substance: MORPHINE SULFATE
     Indication: Pain
     Route: 065
  6. CETIRIZINE [Concomitant]
     Active Substance: CETIRIZINE HYDROCHLORIDE
     Indication: Product used for unknown indication
     Route: 065
  7. ESTRADIOL [Concomitant]
     Active Substance: ESTRADIOL
     Indication: Menopause
     Route: 065
  8. UTROGESTAN [Concomitant]
     Active Substance: PROGESTERONE
     Indication: Product used for unknown indication
     Route: 065
  9. DIAZEPAM [Concomitant]
     Active Substance: DIAZEPAM
     Indication: Product used for unknown indication
     Route: 065
  10. PREGABALIN [Concomitant]
     Active Substance: PREGABALIN
     Indication: Product used for unknown indication
     Route: 065

REACTIONS (2)
  - Skin ulcer [Not Recovered/Not Resolved]
  - Rash [Not Recovered/Not Resolved]

NARRATIVE: CASE EVENT DATE: 20250124
